FAERS Safety Report 5487020-3 (Version None)
Quarter: 2007Q4

REPORT INFORMATION
  Report Type: 
  Country: None (occurrence: None)
  Receive Date: 20071012
  Receipt Date: 20071012
  Transmission Date: 20080405
  Serious: Yes (Death)
  Sender: FDA-Public Use
  Company Number: None

PATIENT
  Sex: Male
  Weight: 7.38 kg

DRUGS (2)
  1. PROPOFOL [Suspect]
     Indication: SEDATIVE THERAPY
     Dosage: 5MG LOAD, THEN 175MCG/KG/MIN   IV   (DURATION: APPROXIMATELY 30 MINUTES)
     Route: 042
     Dates: start: 20070417, end: 20070417
  2. D5 1/2NS [Suspect]
     Indication: SEDATIVE THERAPY
     Dosage: IV   (DURATION: APPROXIMATELY 1.75 HOURS)
     Route: 042
     Dates: start: 20070417, end: 20070417

REACTIONS (2)
  - CARDIOPULMONARY FAILURE [None]
  - RESPIRATORY DISTRESS [None]
